FAERS Safety Report 24365652 (Version 1)
Quarter: 2024Q3

REPORT INFORMATION
  Report Type: Spontaneous
  Country: CA (occurrence: CA)
  Receive Date: 20240926
  Receipt Date: 20240926
  Transmission Date: 20241016
  Serious: Yes (Hospitalization)
  Sender: Vantive US Healthcare
  Company Number: CA-VANTIVE-2024VAN019896

PATIENT
  Sex: Male

DRUGS (1)
  1. EXTRANEAL [Suspect]
     Active Substance: CALCIUM CHLORIDE\ICODEXTRIN\MAGNESIUM CHLORIDE\SODIUM CHLORIDE\SODIUM LACTATE
     Route: 033

REACTIONS (4)
  - Rash macular [Recovering/Resolving]
  - Peripheral swelling [Recovering/Resolving]
  - Catheter site erythema [Recovering/Resolving]
  - Rash [Recovering/Resolving]
